FAERS Safety Report 16177747 (Version 1)
Quarter: 2019Q2

REPORT INFORMATION
  Report Type: Spontaneous
  Country: GB (occurrence: GB)
  Receive Date: 20190410
  Receipt Date: 20190410
  Transmission Date: 20190711
  Serious: Yes (Other)
  Sender: FDA-Public Use
  Company Number: GB-AUROBINDO-AUR-APL-2019-018377

PATIENT

DRUGS (6)
  1. DULOXETINE. [Suspect]
     Active Substance: DULOXETINE
     Indication: ANXIETY
     Dosage: 30 MILLIGRAM
     Route: 048
     Dates: end: 20190303
  2. DULOXETINE. [Suspect]
     Active Substance: DULOXETINE
     Dosage: 90 MILLIGRAM
     Route: 048
     Dates: start: 20190116
  3. OMEPRAZOLE. [Concomitant]
     Active Substance: OMEPRAZOLE
     Indication: PRODUCT USED FOR UNKNOWN INDICATION
     Dosage: UNK
     Route: 065
  4. DULOXETINE. [Suspect]
     Active Substance: DULOXETINE
     Dosage: 60 UNK
     Route: 048
  5. LISINOPRIL. [Concomitant]
     Active Substance: LISINOPRIL
     Indication: PRODUCT USED FOR UNKNOWN INDICATION
     Dosage: UNK
     Route: 065
  6. FLUOXETINE HYDROCHLORIDE. [Concomitant]
     Active Substance: FLUOXETINE HYDROCHLORIDE
     Indication: PRODUCT USED FOR UNKNOWN INDICATION
     Dosage: UNK
     Route: 065

REACTIONS (4)
  - Paraesthesia [Unknown]
  - Withdrawal syndrome [Recovering/Resolving]
  - Pain in extremity [Unknown]
  - Abdominal discomfort [Unknown]

NARRATIVE: CASE EVENT DATE: 20190301
